FAERS Safety Report 16469114 (Version 1)
Quarter: 2019Q3

REPORT INFORMATION
  Report Type: Spontaneous
  Country: US (occurrence: US)
  Receive Date: 20190621
  Receipt Date: 20190621
  Transmission Date: 20191004
  Serious: Yes (Death)
  Sender: FDA-Public Use
  Company Number: None

PATIENT
  Age: 72 Year
  Sex: Male

DRUGS (8)
  1. CAPECITABINE TAB [Suspect]
     Active Substance: CAPECITABINE
     Indication: PANCREATIC CARCINOMA
     Route: 048
     Dates: start: 20190521, end: 20190611
  2. PROBIOTIC [Concomitant]
     Active Substance: PROBIOTICS NOS
  3. ATENOLOL. [Concomitant]
     Active Substance: ATENOLOL
  4. FAMOTIDINE. [Concomitant]
     Active Substance: FAMOTIDINE
  5. FOLIC ACID. [Concomitant]
     Active Substance: FOLIC ACID
  6. CAPECITABINE TAB [Suspect]
     Active Substance: CAPECITABINE
     Indication: PANCREATIC CARCINOMA
     Route: 048
     Dates: start: 20190521, end: 20190611
  7. SODIUM BICARB [Concomitant]
     Active Substance: SODIUM BICARBONATE
  8. TAMSULOSIN [Concomitant]
     Active Substance: TAMSULOSIN

REACTIONS (1)
  - Death [None]

NARRATIVE: CASE EVENT DATE: 20190611
